FAERS Safety Report 10266360 (Version 3)
Quarter: 2014Q3

REPORT INFORMATION
  Report Type: Report from Study
  Country: JP (occurrence: JP)
  Receive Date: 20140628
  Receipt Date: 20140812
  Transmission Date: 20150326
  Serious: Yes (Other)
  Sender: FDA-Public Use
  Company Number: JP-AMGEN-JPNCT2014048176

PATIENT
  Age: 58 Year
  Sex: Male
  Weight: 43 kg

DRUGS (14)
  1. LYRICA [Concomitant]
     Active Substance: PREGABALIN
     Dosage: 3 DF, QD
     Route: 048
  2. MICARDIS [Concomitant]
     Active Substance: TELMISARTAN
     Dosage: 1 DF, QD
     Route: 048
  3. DENOTAS [Concomitant]
     Active Substance: CALCIUM CARBONATE\CHOLECALCIFEROL\MAGNESIUM CARBONATE
     Dosage: 2 DF, QD
     Route: 048
     Dates: start: 20130705, end: 20140324
  4. TRAMAL [Concomitant]
     Active Substance: TRAMADOL
     Dosage: 4 DF, QD
     Route: 048
  5. BEVACIZUMAB [Concomitant]
     Active Substance: BEVACIZUMAB
     Dosage: UNK
     Route: 065
     Dates: start: 20130423, end: 20131122
  6. MIGLITOL [Concomitant]
     Active Substance: MIGLITOL
     Dosage: 3 DF, QD
     Route: 048
  7. PACLITAXEL. [Concomitant]
     Active Substance: PACLITAXEL
     Dosage: UNK
     Route: 065
     Dates: start: 20130423, end: 20130705
  8. LOXONIN [Concomitant]
     Active Substance: LOXOPROFEN SODIUM
     Dosage: 3 DF, QD
     Route: 048
  9. CARBOPLATIN. [Concomitant]
     Active Substance: CARBOPLATIN
     Dosage: UNK
     Route: 065
     Dates: start: 20130423, end: 20130705
  10. METHYCOBAL [Concomitant]
     Active Substance: METHYLCOBALAMIN
     Dosage: 3 DF, QD
     Route: 048
  11. NORVASC [Concomitant]
     Active Substance: AMLODIPINE BESYLATE
     Dosage: 1 DF, QD
     Route: 048
  12. BLOSTAR M [Concomitant]
     Dosage: 1 DF, QD
     Route: 048
  13. DOCETAXEL [Concomitant]
     Active Substance: DOCETAXEL
     Dosage: 80 MG, QD
     Route: 041
     Dates: start: 20140207, end: 20140311
  14. DENOSUMAB [Suspect]
     Active Substance: DENOSUMAB
     Indication: METASTASES TO BONE
     Dosage: 2013/5/7,7/31,8/30,9/20,10/11,11/1,12/27
     Route: 058
     Dates: start: 20130507, end: 20131227

REACTIONS (2)
  - Anaemia [Recovering/Resolving]
  - Osteonecrosis of jaw [Unknown]

NARRATIVE: CASE EVENT DATE: 20140131
